FAERS Safety Report 19237870 (Version 1)
Quarter: 2021Q2

REPORT INFORMATION
  Report Type: Report from Study
  Country: None (occurrence: US)
  Receive Date: 20210510
  Receipt Date: 20210510
  Transmission Date: 20210717
  Serious: Yes (Death)
  Sender: FDA-Public Use
  Company Number: US-XGEN PHARMACEUTICALS DJB, INC.-2110367

PATIENT
  Age: 24 Year
  Sex: Male

DRUGS (2)
  1. VORICONAZOLE. [Interacting]
     Active Substance: VORICONAZOLE
  2. AMPHOTERICIN B. [Suspect]
     Active Substance: AMPHOTERICIN B
     Route: 042

REACTIONS (1)
  - Acute hepatic failure [Fatal]
